FAERS Safety Report 7294901-7 (Version None)
Quarter: 2011Q1

REPORT INFORMATION
  Report Type: 
  Country: None (occurrence: None)
  Receive Date: 20110216
  Receipt Date: 20110207
  Transmission Date: 20110831
  Serious: Yes (Hospitalization)
  Sender: FDA-Public Use
  Company Number: JP-JNJFOC-20101108379

PATIENT
  Sex: Male

DRUGS (11)
  1. ZITHROMAX [Concomitant]
     Indication: PROPHYLAXIS
     Route: 048
  2. GASCON [Concomitant]
     Indication: ABDOMINAL DISTENSION
     Route: 048
  3. ISENTRESS [Concomitant]
     Indication: HIV INFECTION
     Route: 048
  4. BAKTAR [Concomitant]
     Indication: PROPHYLAXIS
     Route: 048
  5. NORVIR [Concomitant]
     Indication: HIV INFECTION
     Route: 048
  6. CROSS EIGHT M [Concomitant]
     Indication: FACTOR VIII DEFICIENCY
     Dosage: DOSE GIVEN ONCE 1/3 DAYS
     Route: 042
  7. MK-0518 [Concomitant]
     Indication: HIV INFECTION
  8. PREZISTA [Suspect]
     Indication: HIV INFECTION
     Route: 048
  9. BIOFERMIN R [Concomitant]
     Indication: ABDOMINAL DISTENSION
     Route: 048
  10. PREZISTA [Suspect]
     Route: 048
  11. TRUVADA [Concomitant]
     Indication: HIV INFECTION
     Route: 048

REACTIONS (1)
  - BRADYCARDIA [None]
